FAERS Safety Report 22283293 (Version 1)
Quarter: 2023Q2

REPORT INFORMATION
  Report Type: Spontaneous
  Country: JP (occurrence: JP)
  Receive Date: 20230504
  Receipt Date: 20230504
  Transmission Date: 20230722
  Serious: Yes (Other)
  Sender: FDA-Public Use
  Company Number: None

PATIENT
  Age: 20 Year
  Sex: Female
  Weight: 64.5 kg

DRUGS (2)
  1. PREDNISOLONE [Suspect]
     Active Substance: PREDNISOLONE
     Indication: Asthma
     Dosage: GREATER THAN AND EQUAL TO 20 MG/DAY
     Route: 065
  2. OXYGEN [Concomitant]
     Active Substance: OXYGEN
     Indication: Asthma
     Dosage: 2 LITERS PER MIN
     Route: 065

REACTIONS (4)
  - Impaired quality of life [None]
  - Osteonecrosis [Unknown]
  - Depression [None]
  - Osteoporosis [Unknown]
